FAERS Safety Report 10721297 (Version 1)
Quarter: 2015Q1

REPORT INFORMATION
  Report Type: Spontaneous
  Country: AT (occurrence: AT)
  Receive Date: 20150119
  Receipt Date: 20150119
  Transmission Date: 20150721
  Serious: Yes (Other)
  Sender: FDA-Public Use
  Company Number: PHHY2014AT142620

PATIENT
  Sex: Female

DRUGS (1)
  1. ULTIBRO BREEZHALER [Suspect]
     Active Substance: GLYCOPYRRONIUM\INDACATEROL
     Indication: PRODUCT USED FOR UNKNOWN INDICATION
     Dosage: UNK
     Route: 065

REACTIONS (6)
  - Cough [Recovering/Resolving]
  - Flushing [Recovering/Resolving]
  - Cyanosis [Recovering/Resolving]
  - Dyspnoea [Unknown]
  - Asphyxia [Recovering/Resolving]
  - Device malfunction [Unknown]
